FAERS Safety Report 7282601-9 (Version None)
Quarter: 2011Q1

REPORT INFORMATION
  Report Type: 
  Country: None (occurrence: None)
  Receive Date: 20110209
  Receipt Date: 20110206
  Transmission Date: 20110831
  Serious: No
  Sender: FDA-Public Use
  Company Number: US-PFIZER INC-2011026504

PATIENT
  Sex: Female
  Weight: 68 kg

DRUGS (5)
  1. CHANTIX [Suspect]
     Dosage: 1 MG, 2X/DAY
     Dates: start: 20110201, end: 20110205
  2. CHANTIX [Suspect]
     Dosage: UNK
     Dates: start: 20110206
  3. PROVERA [Concomitant]
     Dosage: UNK
  4. CHANTIX [Suspect]
     Indication: SMOKING CESSATION THERAPY
     Dosage: 0.5 MG, 1X/DAY
     Route: 048
     Dates: start: 20110101, end: 20110201
  5. LISINOPRIL [Concomitant]
     Dosage: 20 MG, UNK

REACTIONS (3)
  - POOR QUALITY SLEEP [None]
  - NAUSEA [None]
  - COUGH [None]
